FAERS Safety Report 9365720 (Version 1)
Quarter: 2013Q2

REPORT INFORMATION
  Report Type: Spontaneous
  Country: JP (occurrence: JP)
  Receive Date: 20130625
  Receipt Date: 20130625
  Transmission Date: 20140414
  Serious: No
  Sender: FDA-Public Use
  Company Number: JP-JNJFOC-20130608238

PATIENT
  Sex: Female

DRUGS (1)
  1. DUROTEP MT [Suspect]
     Indication: PRODUCT USED FOR UNKNOWN INDICATION
     Route: 062
     Dates: start: 201305

REACTIONS (4)
  - Feeling abnormal [Unknown]
  - Incorrect drug administration duration [Unknown]
  - Application site pruritus [Unknown]
  - Treatment noncompliance [Unknown]
